FAERS Safety Report 9645476 (Version 2)
Quarter: 2013Q4

REPORT INFORMATION
  Report Type: Spontaneous
  Country: US (occurrence: US)
  Receive Date: 20131025
  Receipt Date: 20131025
  Transmission Date: 20140711
  Serious: No
  Sender: FDA-Public Use
  Company Number: US-MYLANLABS-2013S1018529

PATIENT
  Sex: Female

DRUGS (2)
  1. PANTOPRAZOLE SODIUM DELAYED-RELEASE TABLETS [Suspect]
     Indication: DYSPEPSIA
     Route: 048
     Dates: start: 201301, end: 20130816
  2. NAPROXEN SODIUM [Concomitant]
     Indication: OSTEOARTHRITIS

REACTIONS (1)
  - Hypersensitivity [Not Recovered/Not Resolved]
